FAERS Safety Report 8288941-9 (Version None)
Quarter: 2012Q2

REPORT INFORMATION
  Report Type: 
  Country: None (occurrence: None)
  Receive Date: 20120412
  Receipt Date: 20120402
  Transmission Date: 20120825
  Serious: Yes (Other)
  Sender: FDA-Public Use
  Company Number: TPA2012A01502

PATIENT
  Age: 60 Year
  Sex: Male
  Weight: 70.3075 kg

DRUGS (2)
  1. LIPITOR [Concomitant]
  2. EDARBI [Suspect]
     Indication: HYPERTENSION
     Dosage: 80 MG, 1 IN 1 D, PER ORAL
     Route: 048

REACTIONS (6)
  - MUSCLE SPASMS [None]
  - FATIGUE [None]
  - NAUSEA [None]
  - DIARRHOEA [None]
  - RENAL FAILURE [None]
  - MYALGIA [None]
